FAERS Safety Report 16532290 (Version 1)
Quarter: 2019Q3

REPORT INFORMATION
  Report Type: Spontaneous
  Country: US (occurrence: US)
  Receive Date: 20190705
  Receipt Date: 20190705
  Transmission Date: 20191004
  Serious: Yes (Hospitalization, Other)
  Sender: FDA-Public Use
  Company Number: US-PROCTER_AND_GAMBLE-GS19068198

PATIENT
  Age: 48 Year
  Sex: Female

DRUGS (3)
  1. THIAZIDE [Suspect]
     Active Substance: UNSPECIFIED INGREDIENT
     Dosage: 25 MG
     Route: 048
  2. CALCITRIOL. [Concomitant]
     Active Substance: CALCITRIOL
     Indication: HYPOCALCAEMIA
  3. CALCIUM CARBONATE, UNSPECIFIED [Suspect]
     Active Substance: CALCIUM CARBONATE
     Indication: HYPOCALCAEMIA
     Dosage: 1000 MG TID
     Route: 048

REACTIONS (38)
  - Metabolic acidosis [Unknown]
  - Condition aggravated [Unknown]
  - Blood pH decreased [Unknown]
  - Blood creatine increased [Unknown]
  - Abdominal pain upper [Unknown]
  - Asthenia [Unknown]
  - Vomiting [Unknown]
  - Diarrhoea [Unknown]
  - Gastrointestinal sounds abnormal [Unknown]
  - Peripancreatic fluid collection [Recovered/Resolved]
  - Leukocytosis [Unknown]
  - Systemic inflammatory response syndrome [Unknown]
  - White blood cell count increased [Unknown]
  - Blood lactic acid increased [Unknown]
  - Acute kidney injury [Recovered/Resolved]
  - Renal tubular necrosis [Recovering/Resolving]
  - Respiratory alkalosis [Unknown]
  - Tachycardia [Unknown]
  - Blood urea increased [Unknown]
  - Pancreatic enlargement [Recovered/Resolved]
  - Hypotension [Unknown]
  - Blood bicarbonate decreased [Unknown]
  - Dehydration [Unknown]
  - Mental status changes [Unknown]
  - Abdominal tenderness [Unknown]
  - Medical observation abnormal [Unknown]
  - Lipase increased [Unknown]
  - Hypercalcaemia [Unknown]
  - Pancreatitis acute [Recovered/Resolved]
  - Blood calcium increased [Unknown]
  - Fall [Unknown]
  - Skin turgor decreased [Unknown]
  - Amylase increased [Unknown]
  - Decreased appetite [Unknown]
  - Tachypnoea [Unknown]
  - Mucosal dryness [Unknown]
  - Renal impairment [Recovered/Resolved]
  - Hypovolaemia [Unknown]
